FAERS Safety Report 25610247 (Version 1)
Quarter: 2025Q3

REPORT INFORMATION
  Report Type: Spontaneous
  Country: US (occurrence: US)
  Receive Date: 20250728
  Receipt Date: 20250728
  Transmission Date: 20251021
  Serious: No
  Sender: SAREPTA THERAPEUTICS
  Company Number: US-SAREPTA THERAPEUTICS INC.-SRP2025-005929

PATIENT
  Sex: Male

DRUGS (1)
  1. AMONDYS 45 [Suspect]
     Active Substance: CASIMERSEN
     Indication: Product used for unknown indication
     Route: 042
     Dates: end: 20250418

REACTIONS (6)
  - Malaise [Unknown]
  - Viral infection [Unknown]
  - Hypotension [Unknown]
  - Heart rate increased [Unknown]
  - Streptococcal infection [Unknown]
  - Oropharyngeal pain [Unknown]
